FAERS Safety Report 15284769 (Version 1)
Quarter: 2018Q3

REPORT INFORMATION
  Report Type: Spontaneous
  Country: US (occurrence: US)
  Receive Date: 20180816
  Receipt Date: 20180816
  Transmission Date: 20181010
  Serious: Yes (Other)
  Sender: FDA-Public Use
  Company Number: US-JNJFOC-20180814772

PATIENT
  Sex: Female

DRUGS (1)
  1. XARELTO [Suspect]
     Active Substance: RIVAROXABAN
     Indication: PRODUCT USED FOR UNKNOWN INDICATION
     Route: 048

REACTIONS (6)
  - Renal impairment [Unknown]
  - Cerebrovascular accident [Unknown]
  - Stent placement [Unknown]
  - Thrombosis [Unknown]
  - Myocardial infarction [Unknown]
  - Neoplasm malignant [Unknown]
